FAERS Safety Report 5407195-1 (Version None)
Quarter: 2007Q3

REPORT INFORMATION
  Report Type: 
  Country: None (occurrence: None)
  Receive Date: 20070807
  Receipt Date: 20070801
  Transmission Date: 20080115
  Serious: Yes (Hospitalization)
  Sender: FDA-Public Use
  Company Number: A0644703A

PATIENT
  Age: 64 Year
  Sex: Female

DRUGS (13)
  1. ADVAIR DISKUS 100/50 [Suspect]
     Indication: ASTHMA
     Dosage: 1PUFF PER DAY
     Route: 055
     Dates: start: 20070320
  2. ADVAIR DISKUS 100/50 [Suspect]
     Dosage: 1PUFF TWICE PER DAY
     Route: 055
     Dates: start: 20070501
  3. ADVAIR DISKUS 100/50 [Suspect]
     Dosage: 2SPR TWICE PER DAY
     Route: 055
     Dates: start: 20070701
  4. BENICAR [Concomitant]
  5. HYDROCHLOROTHIAZIDE [Concomitant]
  6. PREDNISONE TAB [Concomitant]
  7. ALBUTEROL [Concomitant]
  8. GLIMEPIRIDE [Concomitant]
  9. METFORMIN HCL [Concomitant]
  10. LORATADINE [Concomitant]
  11. SINGULAIR [Concomitant]
  12. SPIRIVA [Concomitant]
  13. PREDNISOLONE [Concomitant]

REACTIONS (15)
  - ASTHMA [None]
  - CHEST DISCOMFORT [None]
  - CHILLS [None]
  - CHRONIC OBSTRUCTIVE PULMONARY DISEASE [None]
  - COUGH [None]
  - DIZZINESS [None]
  - DRUG INEFFECTIVE [None]
  - DRY MOUTH [None]
  - EPISTAXIS [None]
  - GASTROOESOPHAGEAL REFLUX DISEASE [None]
  - HAEMOPTYSIS [None]
  - LYMPH NODE PAIN [None]
  - MUSCULOSKELETAL CHEST PAIN [None]
  - PNEUMONIA [None]
  - PYREXIA [None]
